FAERS Safety Report 9632762 (Version 2)
Quarter: 2014Q1

REPORT INFORMATION
  Report Type: Spontaneous
  Country: US (occurrence: US)
  Receive Date: 20131018
  Receipt Date: 20140331
  Transmission Date: 20141002
  Serious: Yes (Hospitalization)
  Sender: FDA-Public Use
  Company Number: US-B.I. PHARMACEUTICALS,INC./RIDGEFIELD-2013-BI-32760BP

PATIENT
  Age: 85 Year
  Sex: Female
  Weight: 72.57 kg

DRUGS (8)
  1. PRADAXA [Suspect]
     Indication: ATRIAL FIBRILLATION
     Dosage: 150 MG
     Route: 065
     Dates: start: 20110413, end: 20111110
  2. AVAPRO [Concomitant]
     Dosage: 300 MG
     Route: 048
  3. CALTRATE [Concomitant]
     Dosage: 600 MG
     Route: 065
  4. HYDROCHLOROTHIAZIDE [Concomitant]
     Dosage: 25 MG
     Route: 065
  5. LEVOXYL [Concomitant]
     Dosage: 50 MCG
     Route: 065
  6. METOPROLOL [Concomitant]
     Dosage: 150 MG
     Route: 065
  7. PRILOSEC [Concomitant]
     Dosage: 40 MG
     Route: 065
  8. ZOCOR [Concomitant]
     Dosage: 40 MG
     Route: 065

REACTIONS (4)
  - Lower gastrointestinal haemorrhage [Unknown]
  - Anaemia [Unknown]
  - Coagulopathy [Unknown]
  - Renal failure acute [Recovered/Resolved]
